FAERS Safety Report 10664232 (Version 2)
Quarter: 2014Q4

REPORT INFORMATION
  Report Type: Report from Study
  Country: US (occurrence: US)
  Receive Date: 20141219
  Receipt Date: 20141219
  Transmission Date: 20150529
  Serious: Yes (Other)
  Sender: FDA-Public Use
  Company Number: US-BIOGENIDEC-2014BI077254

PATIENT
  Age: 65 Year
  Sex: Female

DRUGS (2)
  1. AVONEX [Suspect]
     Active Substance: INTERFERON BETA-1A
     Indication: MULTIPLE SCLEROSIS
     Route: 030
  2. AVONEX [Suspect]
     Active Substance: INTERFERON BETA-1A
     Indication: MULTIPLE SCLEROSIS
     Route: 030
     Dates: start: 20090317

REACTIONS (4)
  - Pneumonia aspiration [Not Recovered/Not Resolved]
  - Memory impairment [Recovered/Resolved]
  - Depressed level of consciousness [Recovered/Resolved with Sequelae]
  - Heart rate increased [Recovered/Resolved with Sequelae]

NARRATIVE: CASE EVENT DATE: 2014
